FAERS Safety Report 22298541 (Version 2)
Quarter: 2024Q1

REPORT INFORMATION
  Report Type: Report from Study
  Country: US (occurrence: US)
  Receive Date: 20230509
  Receipt Date: 20240130
  Transmission Date: 20240409
  Serious: Yes (Hospitalization)
  Sender: FDA-Public Use
  Company Number: US-BoehringerIngelheim-2023-BI-236396

PATIENT
  Age: 59 Year
  Sex: Female

DRUGS (1)
  1. JARDIANCE [Suspect]
     Active Substance: EMPAGLIFLOZIN
     Indication: Type 2 diabetes mellitus
     Route: 048
     Dates: start: 2002

REACTIONS (4)
  - Coronary artery bypass [Recovered/Resolved]
  - Gastrointestinal haemorrhage [Recovered/Resolved]
  - Coronary arterial stent insertion [Recovered/Resolved]
  - Type 3 diabetes mellitus [Unknown]

NARRATIVE: CASE EVENT DATE: 20200101
